FAERS Safety Report 18837855 (Version 2)
Quarter: 2022Q1

REPORT INFORMATION
  Report Type: Spontaneous
  Country: ZA (occurrence: ZA)
  Receive Date: 20210203
  Receipt Date: 20220225
  Transmission Date: 20220424
  Serious: Yes (Other)
  Sender: FDA-Public Use
  Company Number: ZA-PFIZER INC-2021083848

PATIENT
  Age: 47 Year
  Sex: Female

DRUGS (5)
  1. SULFASALAZINE [Suspect]
     Active Substance: SULFASALAZINE
     Dosage: 1000 MG, TWICE A DAY
     Dates: start: 20080101
  2. ENBREL [Concomitant]
     Active Substance: ETANERCEPT
     Dosage: 50 MG, WEEKLY
     Dates: start: 20120716
  3. METHOTREXATE SODIUM [Concomitant]
     Active Substance: METHOTREXATE SODIUM
     Dosage: 15 MG, WEEKLY
     Dates: start: 20111201
  4. ARCOXIA [Concomitant]
     Active Substance: ETORICOXIB
     Dosage: 120 MG, DAILY
     Dates: start: 20120329
  5. PREDNISONE [Concomitant]
     Active Substance: PREDNISONE
     Dosage: UNK, (2 PANAFCORT 3 IMES PER WEEK)
     Dates: start: 20120329

REACTIONS (11)
  - Cholelithiasis [Unknown]
  - Toxicity to various agents [Unknown]
  - Alanine aminotransferase increased [Unknown]
  - Aspartate aminotransferase increased [Unknown]
  - Blood alkaline phosphatase increased [Unknown]
  - Interferon gamma release assay positive [Unknown]
  - C-reactive protein increased [Unknown]
  - Haemoglobin increased [Unknown]
  - Spinal pain [Unknown]
  - Joint swelling [Unknown]
  - Arthralgia [Unknown]

NARRATIVE: CASE EVENT DATE: 20120327
